FAERS Safety Report 5114070-9 (Version None)
Quarter: 2006Q3

REPORT INFORMATION
  Report Type: 
  Country: None (occurrence: None)
  Receive Date: 20060925
  Receipt Date: 20060728
  Transmission Date: 20061208
  Serious: Yes (Other)
  Sender: FDA-Public Use
  Company Number: US-GLAXOSMITHKLINE-A0614725A

PATIENT
  Age: 5 Year
  Sex: Female
  Weight: 15 kg

DRUGS (3)
  1. FLOVENT [Suspect]
     Indication: ASTHMA
     Dosage: 1PUFF TWICE PER DAY
     Route: 055
     Dates: start: 20051201
  2. ZYRTEC [Concomitant]
  3. SINGULAIR [Concomitant]

REACTIONS (3)
  - ANAEMIA [None]
  - IDIOPATHIC THROMBOCYTOPENIC PURPURA [None]
  - PETECHIAE [None]
